FAERS Safety Report 25388287 (Version 1)
Quarter: 2025Q2

REPORT INFORMATION
  Report Type: Spontaneous
  Country: US (occurrence: US)
  Receive Date: 20250603
  Receipt Date: 20250603
  Transmission Date: 20250717
  Serious: Yes (Hospitalization, Other)
  Sender: AMGEN
  Company Number: US-AMGEN-USASP2025106340

PATIENT
  Age: 8 Year
  Sex: Female

DRUGS (20)
  1. RITUXIMAB [Suspect]
     Active Substance: RITUXIMAB
     Indication: Immune-mediated encephalitis
     Route: 065
  2. METHYLPREDNISOLONE [Concomitant]
     Active Substance: METHYLPREDNISOLONE
     Route: 040
  3. Immunoglobulin [Concomitant]
     Route: 040
  4. PENTOBARBITAL [Concomitant]
     Active Substance: PENTOBARBITAL
     Route: 040
  5. KETAMINE [Concomitant]
     Active Substance: KETAMINE
  6. ANAKINRA [Concomitant]
     Active Substance: ANAKINRA
  7. ANAKINRA [Concomitant]
     Active Substance: ANAKINRA
  8. LEVETIRACETAM [Concomitant]
     Active Substance: LEVETIRACETAM
  9. FOSPHENYTOIN [Concomitant]
     Active Substance: FOSPHENYTOIN
  10. LACOSAMIDE [Concomitant]
     Active Substance: LACOSAMIDE
  11. VALPROATE [Concomitant]
     Active Substance: VALPROIC ACID
  12. BRIVARACETAM [Concomitant]
     Active Substance: BRIVARACETAM
  13. CLOBAZAM [Concomitant]
     Active Substance: CLOBAZAM
  14. PHENOBARBITAL [Concomitant]
     Active Substance: PHENOBARBITAL
  15. CENOBAMATE [Concomitant]
     Active Substance: CENOBAMATE
  16. CANNABIDIOL [Concomitant]
     Active Substance: CANNABIDIOL
  17. PERAMPANEL [Concomitant]
     Active Substance: PERAMPANEL
  18. MIDAZOLAM [Concomitant]
     Active Substance: MIDAZOLAM
     Route: 040
  19. DEXMEDETOMIDINE [Concomitant]
     Active Substance: DEXMEDETOMIDINE
     Route: 040
  20. DIVALPROEX SODIUM [Concomitant]
     Active Substance: DIVALPROEX SODIUM

REACTIONS (16)
  - Seizure [Recovering/Resolving]
  - Macroglossia [Unknown]
  - Nephrolithiasis [Recovering/Resolving]
  - Thrombocytopenia [Unknown]
  - Pneumonia [Unknown]
  - Hypogammaglobulinaemia [Unknown]
  - T-lymphocyte count increased [Unknown]
  - Joint swelling [Unknown]
  - Joint range of motion decreased [Unknown]
  - Amnesia [Unknown]
  - Brain fog [Unknown]
  - Intermittent explosive disorder [Unknown]
  - Off label use [Unknown]
  - Drug ineffective for unapproved indication [Unknown]
  - Muscular weakness [Unknown]
  - Urinary tract infection [Unknown]
